FAERS Safety Report 19197080 (Version 2)
Quarter: 2021Q2

REPORT INFORMATION
  Report Type: Report from Study
  Country: US (occurrence: US)
  Receive Date: 20210429
  Receipt Date: 20210628
  Transmission Date: 20210717
  Serious: Yes (Death, Hospitalization, Other)
  Sender: FDA-Public Use
  Company Number: NVSC2021US097259

PATIENT
  Age: 76 Year
  Sex: Male

DRUGS (1)
  1. ARZERRA [Suspect]
     Active Substance: OFATUMUMAB
     Indication: PRODUCT USED FOR UNKNOWN INDICATION
     Dosage: UNK
     Route: 065
     Dates: end: 20201030

REACTIONS (4)
  - Dyspnoea [Fatal]
  - COVID-19 pneumonia [Fatal]
  - Respiratory failure [Fatal]
  - Pyrexia [Fatal]

NARRATIVE: CASE EVENT DATE: 202011
